FAERS Safety Report 4427067-9 (Version None)
Quarter: 2004Q3

REPORT INFORMATION
  Report Type: 
  Country: None (occurrence: None)
  Receive Date: 20040816
  Receipt Date: 20040806
  Transmission Date: 20050211
  Serious: Yes (Hospitalization)
  Sender: FDA-Public Use
  Company Number: US-MERCK-0408USA00631

PATIENT
  Age: 64 Year
  Sex: Male

DRUGS (8)
  1. CANCIDAS [Suspect]
     Route: 042
  2. CANCIDAS [Suspect]
     Route: 042
  3. CEFEPIME [Concomitant]
     Route: 042
  4. CIPROFLOXACIN [Concomitant]
     Route: 042
  5. FLUOROURACIL [Concomitant]
     Route: 065
  6. LEUCOVORIN CALCIUM [Concomitant]
     Route: 065
  7. METRONIDAZOLE [Concomitant]
     Route: 042
  8. VANCOMYCIN [Concomitant]
     Route: 042

REACTIONS (5)
  - CANDIDIASIS [None]
  - CATHETER RELATED INFECTION [None]
  - CULTURE POSITIVE [None]
  - HAEMODYNAMIC INSTABILITY [None]
  - THERAPY NON-RESPONDER [None]
